FAERS Safety Report 11194639 (Version 1)
Quarter: 2015Q2

REPORT INFORMATION
  Report Type: Spontaneous
  Country: US (occurrence: US)
  Receive Date: 20150617
  Receipt Date: 20150617
  Transmission Date: 20150821
  Serious: Yes (Other)
  Sender: FDA-Public Use
  Company Number: US-RANBAXY-2015US-94022

PATIENT
  Age: 15 Year
  Sex: Male

DRUGS (2)
  1. AMNESTEEM [Suspect]
     Active Substance: ISOTRETINOIN
     Indication: PRODUCT USED FOR UNKNOWN INDICATION
     Route: 065
  2. ABSORICA [Suspect]
     Active Substance: ISOTRETINOIN
     Indication: PRODUCT USED FOR UNKNOWN INDICATION
     Route: 065

REACTIONS (4)
  - Mood swings [Unknown]
  - Myalgia [Unknown]
  - Depression [Unknown]
  - Arthralgia [Unknown]
